FAERS Safety Report 9532544 (Version 2)
Quarter: 2013Q3

REPORT INFORMATION
  Report Type: Spontaneous
  Country: US (occurrence: None)
  Receive Date: 20130916
  Receipt Date: 20130926
  Transmission Date: 20140515
  Serious: Yes (Other)
  Sender: FDA-Public Use
  Company Number: 2013EXPUS00134

PATIENT
  Sex: Male

DRUGS (1)
  1. EXPAREL [Suspect]
     Indication: PRODUCT USED FOR UNKNOWN INDICATION
     Dosage: INFILRATION
     Dates: start: 201308, end: 201308

REACTIONS (3)
  - Respiratory arrest [None]
  - Muscle rigidity [None]
  - Seizure like phenomena [None]
